FAERS Safety Report 23082441 (Version 1)
Quarter: 2023Q4

REPORT INFORMATION
  Report Type: Spontaneous
  Country: CL (occurrence: None)
  Receive Date: 20231019
  Receipt Date: 20231019
  Transmission Date: 20240110
  Serious: Yes (Hospitalization)
  Sender: FDA-Public Use
  Company Number: CL-ROCHE-3438860

PATIENT
  Age: 49 Year
  Sex: Female

DRUGS (5)
  1. HERCEPTIN [Suspect]
     Active Substance: TRASTUZUMAB
     Indication: HER2 positive breast cancer
     Route: 058
     Dates: start: 20221226, end: 20230722
  2. KADCYLA [Suspect]
     Active Substance: ADO-TRASTUZUMAB EMTANSINE
     Indication: HER2 positive breast cancer
     Route: 065
     Dates: end: 20231003
  3. INSULIN NOS [Concomitant]
     Active Substance: INSULIN NOS
     Dosage: DOSE AND FREQUENCY WERE NOT REPORTED
  4. METFORMIN [Concomitant]
     Active Substance: METFORMIN HYDROCHLORIDE
     Dosage: DOSE AND FREQUENCY WERE NOT REPORTED
  5. TAMOXIFEN [Concomitant]
     Active Substance: TAMOXIFEN
     Dosage: DOSE AND FREQUENCY WERE NOT REPORTED

REACTIONS (1)
  - Pneumonia [Unknown]

NARRATIVE: CASE EVENT DATE: 20230712
